FAERS Safety Report 12392081 (Version 1)
Quarter: 2016Q2

REPORT INFORMATION
  Report Type: Spontaneous
  Country: US (occurrence: US)
  Receive Date: 20160523
  Receipt Date: 20160523
  Transmission Date: 20160815
  Serious: No
  Sender: FDA-Public Use
  Company Number: US-TEVA-629162USA

PATIENT
  Age: 52 Year
  Sex: Male

DRUGS (1)
  1. CISPLATIN. [Suspect]
     Active Substance: CISPLATIN
     Dosage: 570 MILLIGRAM DAILY;
     Route: 065
     Dates: start: 201401

REACTIONS (2)
  - Adverse event [Unknown]
  - Nervous system disorder [Unknown]
